FAERS Safety Report 10042309 (Version 1)
Quarter: 2014Q1

REPORT INFORMATION
  Report Type: Spontaneous
  Country: US (occurrence: US)
  Receive Date: 20140327
  Receipt Date: 20140327
  Transmission Date: 20141002
  Serious: Yes (Other)
  Sender: FDA-Public Use
  Company Number: US-BAYER-2014-044112

PATIENT
  Age: 60 Year
  Sex: Female
  Weight: 125.17 kg

DRUGS (20)
  1. BETASERON [Suspect]
     Indication: MULTIPLE SCLEROSIS
     Dosage: 0.25 MG, QOD
     Route: 058
  2. ALEVE LIQUID GELS [Concomitant]
     Route: 048
  3. ALEVE LIQUID GELS [Concomitant]
     Dosage: 220 MG, UNK
     Route: 048
  4. KLONOPIN [Concomitant]
     Dosage: 0.5 MG, UNK
     Route: 048
  5. ZOLOFT [Concomitant]
     Dosage: 100 MG, UNK
     Route: 048
  6. VICODIN [Concomitant]
     Dosage: 300 MG, UNK
     Route: 048
  7. TRICOR [Concomitant]
     Dosage: 48 MG, UNK
     Route: 048
  8. GLUCOPHAGE [Concomitant]
     Dosage: 500 MG, UNK
     Route: 048
  9. SIMVASTATIN [Concomitant]
     Dosage: 100 MG, UNK
     Route: 048
  10. NOVOLOG [Concomitant]
     Dosage: 100 ML, UNK
     Route: 058
  11. LOVAZA [Concomitant]
     Dosage: 1 G, UNK
     Route: 048
  12. VITAMIN B12 NOS [Concomitant]
     Dosage: 1000 MCG, UNK
     Route: 048
  13. CALCIUM W/VITAMIN D NOS [Concomitant]
     Dosage: UNK
     Route: 048
  14. VESICARE [Concomitant]
     Dosage: 10 MG, UNK
     Route: 048
  15. FOLIC ACID [Concomitant]
     Route: 048
  16. LORTAB [Concomitant]
  17. IRON [Concomitant]
  18. MAXZIDE [Concomitant]
     Dosage: UNK
     Route: 048
  19. ALTACE [Concomitant]
     Dosage: 1.25 MG, UNK
     Route: 048
  20. STOOL SOFTENER [Concomitant]

REACTIONS (1)
  - Anaemia [Unknown]
